FAERS Safety Report 13923764 (Version 2)
Quarter: 2017Q4

REPORT INFORMATION
  Report Type: Spontaneous
  Country: US (occurrence: US)
  Receive Date: 20170831
  Receipt Date: 20171012
  Transmission Date: 20180320
  Serious: No
  Sender: FDA-Public Use
  Company Number: US-PFIZER INC-2017375219

PATIENT
  Age: 66 Year
  Sex: Female
  Weight: 67 kg

DRUGS (22)
  1. METFORMIN [Concomitant]
     Active Substance: METFORMIN HYDROCHLORIDE
     Indication: DIABETES MELLITUS
     Dosage: 2000 MG, 1X/DAY ((2 TABS BREAKFAST + 2 AT DINNER)
  2. ASPIRIN 81 [Concomitant]
     Active Substance: ASPIRIN
     Dosage: 1 DF, 1X/DAY (1 TAB AT BEDTIME)
  3. EFFEXOR XR [Suspect]
     Active Substance: VENLAFAXINE HYDROCHLORIDE
     Indication: TENSION
     Dosage: 75 MG, 1X/DAY
  4. GLIMEPIRIDE. [Concomitant]
     Active Substance: GLIMEPIRIDE
     Indication: DIABETES MELLITUS
     Dosage: 4 MG, UNK
     Dates: end: 201702
  5. FENOFIBRATE. [Concomitant]
     Active Substance: FENOFIBRATE
     Dosage: 160 MG, 1X/DAY (1 TAB BEDTIME)
  6. ESTER-C [Concomitant]
     Active Substance: CALCIUM\VITAMINS
     Dosage: 250 MG, 1X/DAY (1 TAB AT BEDTIME)
  7. VIT B [Concomitant]
     Active Substance: VITAMIN B
     Dosage: UNK
  8. FISH OIL [Concomitant]
     Active Substance: FISH OIL
     Dosage: UNK
  9. NICOTINE. [Concomitant]
     Active Substance: NICOTINE
     Dosage: UNK
  10. CORTIZONE 10 [Concomitant]
     Active Substance: HYDROCORTISONE
     Dosage: UNK
  11. SIMVASTATIN. [Concomitant]
     Active Substance: SIMVASTATIN
     Dosage: 20 MG, 1X/DAY,( AT BEDTIME)
  12. ESTRADIOL. [Concomitant]
     Active Substance: ESTRADIOL
     Dosage: UNK (1/4 TAB EVERY OTHER WEEK)
  13. VITAMIN E [Concomitant]
     Active Substance: .ALPHA.-TOCOPHEROL
     Dosage: UNK
  14. SUDAFED [Concomitant]
     Active Substance: PSEUDOEPHEDRINE HYDROCHLORIDE
     Indication: HYPERSENSITIVITY
     Dosage: AS NEEDED (1 OR 2 A DAY IF NEEDED)
  15. EFFEXOR XR [Suspect]
     Active Substance: VENLAFAXINE HYDROCHLORIDE
     Indication: ANXIETY
     Dosage: 20 MG, 1X/DAY
     Dates: start: 200101
  16. ESTRADIOL. [Concomitant]
     Active Substance: ESTRADIOL
     Dosage: 0.5 MG, THREE TIMES A WEEK
  17. CENTRAL-VITE [Concomitant]
     Dosage: DAILY (1/2 TAB A DAY)
  18. VITAMIN D3 [Concomitant]
     Active Substance: CHOLECALCIFEROL
     Dosage: 1000 IU, UNK(1 TAB EVERY 2 DAYS)
  19. ENTERIC ASPIRIN [Concomitant]
     Active Substance: ASPIRIN
     Dosage: TAB 81: (1 TAB AT BEDTIME)
  20. ACETAMINOPHEN. [Concomitant]
     Active Substance: ACETAMINOPHEN
     Dosage: 500 MG, AS NEEDED (2 A DAY IF NEEDED)
  21. BENADRYL [Concomitant]
     Active Substance: DIPHENHYDRAMINE HYDROCHLORIDE
     Dosage: 25 MG, AS NEEDED (1 NIGHT IF NEEDED)
  22. CALCIUM + VITAMIN D [Concomitant]
     Active Substance: CALCIUM\VITAMIN D
     Dosage: DAILY[[CALCIUM: 600MG]/ [VITAMIN D: 400IU]

REACTIONS (1)
  - Drug ineffective [Unknown]
